FAERS Safety Report 6999097-4 (Version None)
Quarter: 2010Q3

REPORT INFORMATION
  Report Type: 
  Country: None (occurrence: None)
  Receive Date: 20100920
  Receipt Date: 20100610
  Transmission Date: 20110219
  Serious: Yes (Other)
  Sender: FDA-Public Use
  Company Number: US-ASTRAZENECA-2008UW27254

PATIENT
  Age: 21 Year
  Sex: Female
  Weight: 54 kg

DRUGS (6)
  1. SEROQUEL [Suspect]
     Route: 048
  2. ABILIFY [Concomitant]
     Indication: MOOD SWINGS
  3. GEODON [Concomitant]
     Indication: ANGER
  4. HALDOL [Concomitant]
     Indication: ANGER
  5. THORAZINE [Concomitant]
     Indication: SLEEP DISORDER
  6. ZOLOFT [Concomitant]
     Indication: DEPRESSION

REACTIONS (7)
  - ADVERSE DRUG REACTION [None]
  - CYSTITIS INTERSTITIAL [None]
  - DIABETES MELLITUS [None]
  - INSULIN RESISTANCE [None]
  - PANCREATITIS [None]
  - URINARY RETENTION [None]
  - VESICOURETERIC REFLUX [None]
